FAERS Safety Report 19362651 (Version 2)
Quarter: 2021Q2

REPORT INFORMATION
  Report Type: Spontaneous
  Country: FR (occurrence: FR)
  Receive Date: 20210602
  Receipt Date: 20210608
  Transmission Date: 20210717
  Serious: Yes (Other)
  Sender: FDA-Public Use
  Company Number: FR-BAYER-2021-150556

PATIENT

DRUGS (2)
  1. LAROTRECTINIB [Suspect]
     Active Substance: LAROTRECTINIB
     Indication: METASTASIS
  2. LAROTRECTINIB [Suspect]
     Active Substance: LAROTRECTINIB
     Indication: DESMOPLASTIC SMALL ROUND CELL TUMOUR
     Dosage: UNK
     Dates: start: 202102, end: 20210421

REACTIONS (3)
  - Toxicity to various agents [None]
  - Off label use [None]
  - Desmoplastic small round cell tumour [None]
